FAERS Safety Report 11244253 (Version 1)
Quarter: 2015Q3

REPORT INFORMATION
  Report Type: Spontaneous
  Country: US (occurrence: None)
  Receive Date: 20150706
  Receipt Date: 20150706
  Transmission Date: 20151125
  Serious: No
  Sender: FDA-Public Use
  Company Number: None

PATIENT
  Sex: Male

DRUGS (1)
  1. BYETTA [Suspect]
     Active Substance: EXENATIDE
     Dosage: PEN

REACTIONS (3)
  - Drug dispensing error [None]
  - Expired product administered [None]
  - Blood glucose increased [None]

NARRATIVE: CASE EVENT DATE: 2015
